FAERS Safety Report 8555462-5 (Version None)
Quarter: 2012Q3

REPORT INFORMATION
  Report Type: 
  Country: None (occurrence: None)
  Receive Date: 20120731
  Receipt Date: 20111031
  Transmission Date: 20120928
  Serious: No
  Sender: FDA-Public Use
  Company Number: US-ASTRAZENECA-2011SE04659

PATIENT
  Age: 57 Year
  Sex: Female
  Weight: 65.8 kg

DRUGS (4)
  1. BENICAR HCT [Concomitant]
     Dosage: 40/25 MG, EVERYDAY
  2. OMEPRAZOLE [Concomitant]
     Indication: GASTROOESOPHAGEAL REFLUX DISEASE
  3. SEROQUEL [Suspect]
     Indication: SCHIZOPHRENIA
     Route: 048
     Dates: start: 20090101
  4. NORVASC [Concomitant]

REACTIONS (5)
  - STRESS [None]
  - WRONG TECHNIQUE IN DRUG USAGE PROCESS [None]
  - WEIGHT INCREASED [None]
  - DISEASE RECURRENCE [None]
  - DEPRESSED MOOD [None]
